FAERS Safety Report 4779936-8 (Version None)
Quarter: 2005Q3

REPORT INFORMATION
  Report Type: 
  Country: None (occurrence: None)
  Receive Date: 20050927
  Receipt Date: 20050915
  Transmission Date: 20060218
  Serious: Yes (Life-Threatening, Hospitalization)
  Sender: FDA-Public Use
  Company Number: US129196

PATIENT
  Age: 41 Year
  Sex: Male
  Weight: 81.7 kg

DRUGS (20)
  1. ACYCLOVIR [Suspect]
     Indication: DRUG USE FOR UNKNOWN INDICATION
     Dosage: 400MG THREE TIMES PER DAY
     Route: 048
     Dates: start: 20050408, end: 20050429
  2. KEPIVANCE [Suspect]
     Indication: MUCOSAL INFLAMMATION
     Dosage: 60MCK PER DAY
     Route: 042
     Dates: start: 20050330, end: 20050409
  3. PANTOPRAZOLE SODIUM [Concomitant]
     Dosage: 40MG PER DAY
     Route: 048
     Dates: start: 20050405
  4. MELPHALAN [Concomitant]
     Dosage: 70MGM2 PER DAY
     Route: 042
     Dates: start: 20050404, end: 20050405
  5. LORAZEPAM [Concomitant]
     Dosage: 1MG THREE TIMES PER DAY
     Route: 048
     Dates: start: 20050405, end: 20050413
  6. AMLODIPINE BESYLATE [Concomitant]
     Dosage: 10MG PER DAY
     Route: 048
     Dates: start: 20040901
  7. PHOSLO [Concomitant]
     Dosage: 667MG THREE TIMES PER DAY
     Route: 048
     Dates: start: 20040901
  8. DEXAMETHASONE [Concomitant]
     Dosage: 4MG TWICE PER DAY
     Route: 048
     Dates: start: 20050405, end: 20050413
  9. FLUCONAZOLE [Concomitant]
     Dosage: 100MG PER DAY
     Route: 048
     Dates: start: 20050408, end: 20050417
  10. LEVOFLOXACIN [Concomitant]
     Dosage: 250MG PER DAY
     Route: 048
     Dates: start: 20050408, end: 20050417
  11. PROCHLORPERAZINE EDISYLATE [Concomitant]
     Dosage: 10MG FOUR TIMES PER DAY
     Route: 048
     Dates: start: 20050408, end: 20050417
  12. GRANISETRON  HCL [Concomitant]
     Dosage: 1MG TWICE PER DAY
     Route: 048
     Dates: start: 20050408, end: 20050417
  13. NEUPOGEN [Concomitant]
     Dosage: 300MCG PER DAY
     Route: 058
     Dates: start: 20050408, end: 20050417
  14. EPOGEN [Concomitant]
     Route: 058
     Dates: start: 20050408, end: 20050417
  15. ASPIRIN [Concomitant]
     Dosage: 325MG PER DAY
     Route: 048
  16. ATORVASTATIN CALCIUM [Concomitant]
     Dosage: 10MG PER DAY
     Route: 048
  17. LISINOPRIL [Concomitant]
     Dosage: 20MG PER DAY
     Route: 048
  18. DOXAZOSIN MESYLATE [Concomitant]
     Dosage: 1MG TWICE PER DAY
     Route: 048
  19. RANITIDINE HCL [Concomitant]
     Dosage: 150MG PER DAY
     Route: 048
  20. NEPHROCAPS [Concomitant]
     Dosage: 1CAP PER DAY
     Route: 048

REACTIONS (15)
  - ALOPECIA [None]
  - CONVULSION [None]
  - DELIRIUM [None]
  - DEPRESSED LEVEL OF CONSCIOUSNESS [None]
  - DIARRHOEA [None]
  - FEBRILE NEUTROPENIA [None]
  - NAUSEA [None]
  - OTITIS EXTERNA [None]
  - PARAESTHESIA [None]
  - PRURITUS [None]
  - RASH [None]
  - SEPSIS [None]
  - SKIN DISCOLOURATION [None]
  - SUBARACHNOID HAEMORRHAGE [None]
  - VOMITING [None]
